FAERS Safety Report 16644132 (Version 1)
Quarter: 2019Q3

REPORT INFORMATION
  Report Type: Spontaneous
  Country: FR (occurrence: FR)
  Receive Date: 20190729
  Receipt Date: 20190729
  Transmission Date: 20191004
  Serious: Yes (Hospitalization)
  Sender: FDA-Public Use
  Company Number: FR-SA-2019SA199414

PATIENT
  Age: 81 Year
  Sex: Female
  Weight: 49.8 kg

DRUGS (2)
  1. ARAVA [Suspect]
     Active Substance: LEFLUNOMIDE
     Indication: RHEUMATOID ARTHRITIS
     Dosage: 10 MG, QD
     Route: 048
     Dates: start: 2013, end: 20190525
  2. HUMIRA [Suspect]
     Active Substance: ADALIMUMAB
     Indication: RHEUMATOID ARTHRITIS
     Dosage: 1 DF, Q15D
     Route: 058
     Dates: start: 2013, end: 20190525

REACTIONS (2)
  - Encephalitis [Recovering/Resolving]
  - Listeriosis [Recovering/Resolving]

NARRATIVE: CASE EVENT DATE: 20190525
